FAERS Safety Report 16038046 (Version 2)
Quarter: 2019Q2

REPORT INFORMATION
  Report Type: Report from Study
  Country: DE (occurrence: DE)
  Receive Date: 20190305
  Receipt Date: 20190402
  Transmission Date: 20190711
  Serious: Yes (Hospitalization, Other)
  Sender: FDA-Public Use
  Company Number: DE-PFIZER INC-2018111041

PATIENT
  Age: 80 Year
  Sex: Male
  Weight: 82 kg

DRUGS (39)
  1. AVASTIN [Suspect]
     Active Substance: BEVACIZUMAB
     Indication: COLORECTAL CANCER METASTATIC
     Dosage: 615 MG, EVERY 3 WEEKS
     Route: 042
     Dates: start: 20150924, end: 20150924
  2. DIMENHYDRINATE. [Concomitant]
     Active Substance: DIMENHYDRINATE
     Indication: VOMITING
  3. SIMVASTATIN. [Concomitant]
     Active Substance: SIMVASTATIN
     Dosage: 10 MG, 1X/DAY
     Route: 048
     Dates: start: 2015, end: 20151119
  4. FOSINORM [Concomitant]
     Indication: HYPERTENSION
     Dosage: 0.5 DF, 1X/DAY
     Route: 048
     Dates: start: 20010101
  5. ENOXAPARIN [Concomitant]
     Active Substance: ENOXAPARIN
     Indication: THROMBOSIS
     Dosage: 0.4 ML, 1X/DAY
     Route: 058
     Dates: start: 20151122, end: 20151202
  6. AVASTIN [Suspect]
     Active Substance: BEVACIZUMAB
     Dosage: 495 MG, EVERY 3 WEEKS
     Route: 042
     Dates: start: 20160321, end: 20160413
  7. XELODA [Suspect]
     Active Substance: CAPECITABINE
     Dosage: 2500 MG, CYCLIC (DAY 1 TO D14, 1 WEEK REST)
     Route: 048
     Dates: start: 20160118
  8. ASPIRINE [Concomitant]
     Active Substance: ASPIRIN
     Dosage: 100 MG, 1X/DAY
     Route: 048
     Dates: start: 20010101
  9. SIMVASTATIN. [Concomitant]
     Active Substance: SIMVASTATIN
     Indication: HYPERCHOLESTEROLAEMIA
     Dosage: 10 MG, 1X/DAY
     Route: 048
     Dates: start: 20150101, end: 20151119
  10. AVASTIN [Suspect]
     Active Substance: BEVACIZUMAB
     Dosage: 615 MG, EVERY 3 WEEKS
     Route: 042
     Dates: start: 20151105, end: 20151105
  11. ATROPINE. [Concomitant]
     Active Substance: ATROPINE
     Indication: DIARRHOEA
  12. DIMENHYDRINATE. [Concomitant]
     Active Substance: DIMENHYDRINATE
     Dosage: 1 AMPOLE
     Route: 042
     Dates: start: 20151126, end: 20151127
  13. CAPECITABINE. [Suspect]
     Active Substance: CAPECITABINE
     Dosage: 2500 MG, EVERY 3 WEEKS(D1 TO D14,ONE WEEK REST,MOST RECENT DOSES RECEIVED ON 03APR2016, 04MAY2016
     Route: 048
     Dates: start: 20160118, end: 20160504
  14. IRINOTECAN [Concomitant]
     Active Substance: IRINOTECAN
     Indication: COLORECTAL CANCER
     Dosage: 323.2 MG, EVERY 3 WEEKS
     Route: 042
     Dates: start: 20150924, end: 20151105
  15. IRINOTECAN [Concomitant]
     Active Substance: IRINOTECAN
     Dosage: MOST RECENT DOSE RECEIVED ON 21MAR2016
     Route: 042
     Dates: start: 20160229
  16. ATROPINE. [Concomitant]
     Active Substance: ATROPINE
     Indication: CHOLINERGIC SYNDROME
     Dosage: 0.25 MG, EVERY 3 WEEKS
     Route: 058
     Dates: start: 20150924, end: 20160321
  17. DEXAMETHASONE. [Concomitant]
     Active Substance: DEXAMETHASONE
     Indication: NAUSEA
     Dosage: 8 MG DAY 1 BEFORE CHEMOTHERAPY
     Route: 042
     Dates: start: 20160413, end: 20161004
  18. KEVATRIL [Concomitant]
     Active Substance: GRANISETRON HYDROCHLORIDE
     Indication: NAUSEA
     Dosage: 1 DF, EVERY 3 WEEKS
     Route: 042
     Dates: start: 20150924, end: 20160321
  19. OXALIPLATIN. [Suspect]
     Active Substance: OXALIPLATIN
     Dosage: 120 MG, EVERY 3 WEEKS
     Route: 042
     Dates: start: 20160609, end: 20160609
  20. XELODA [Suspect]
     Active Substance: CAPECITABINE
     Dosage: 2000 MG, CYCLIC (DAY 1 TO D14, 1 WEEK REST)
     Route: 048
     Dates: start: 20160609, end: 20160622
  21. BEVACIZUMAB. [Suspect]
     Active Substance: BEVACIZUMAB
     Dosage: 495 MG, EVERY 3 WEEKS
     Route: 042
     Dates: start: 20160321, end: 20160413
  22. CAPECITABINE. [Suspect]
     Active Substance: CAPECITABINE
     Indication: COLORECTAL CANCER METASTATIC
     Dosage: 3000 MG, EVERY 3 WEEKS (D1 TO D14, ONE WEEK REST)
     Route: 048
     Dates: start: 20150924, end: 20151118
  23. CAPECITABINE. [Suspect]
     Active Substance: CAPECITABINE
     Dosage: 2000 MG, EVERY 3 WEEKS
     Route: 048
     Dates: start: 20161004, end: 20161017
  24. FORTECORTIN [Concomitant]
     Active Substance: DEXAMETHASONE
     Indication: VOMITING
     Dosage: 10 MG, EVERY 3 WEEKS
     Route: 042
     Dates: start: 20150924, end: 20160321
  25. FORTECORTIN [Concomitant]
     Active Substance: DEXAMETHASONE
     Indication: NAUSEA
  26. GRANISETRON [Concomitant]
     Active Substance: GRANISETRON
     Indication: NAUSEA
     Dosage: DAY 1 BEFORE CHEMOTHERAPY
     Route: 042
     Dates: start: 20160413
  27. GLIMEPIRID [Concomitant]
     Active Substance: GLIMEPIRIDE
     Indication: DIABETES MELLITUS
     Dosage: 2 MG, 1X/DAY
     Route: 048
     Dates: start: 20110101, end: 20151127
  28. OXALIPLATIN. [Suspect]
     Active Substance: OXALIPLATIN
     Dosage: 119.6 MG, EVERY 3 WEEKS
     Route: 042
     Dates: start: 20161004, end: 20161004
  29. BEVACIZUMAB. [Suspect]
     Active Substance: BEVACIZUMAB
     Indication: COLORECTAL CANCER METASTATIC
     Dosage: 615 MG, EVERY 3 WEEKS (LAST DATE OF DOSE ADMINISTERED PRIOR TO SAE: 05NOV2015)
     Route: 042
     Dates: start: 20150924, end: 20150924
  30. BEVACIZUMAB. [Suspect]
     Active Substance: BEVACIZUMAB
     Dosage: 615 MG, EVERY 3 WEEKS (LAST DATE OF DOSE ADMINISTERED PRIOR TO SAE: 05NOV2015)
     Route: 042
     Dates: start: 20151105
  31. CAPECITABINE. [Suspect]
     Active Substance: CAPECITABINE
     Dosage: 2000 MG, EVERY 3 WEEKS (DATE OF MOST RECENT DOSE: 22JUN2016)
     Route: 048
     Dates: start: 20160609, end: 20160622
  32. ASPIRINE [Concomitant]
     Active Substance: ASPIRIN
     Dosage: 100 MG, 1X/DAY
     Route: 048
     Dates: start: 2001
  33. XELODA [Suspect]
     Active Substance: CAPECITABINE
     Indication: COLORECTAL CANCER METASTATIC
     Dosage: 3000 MG, CYCLIC (DAY 1 TO D14, 1 WEEK REST)
     Route: 048
     Dates: start: 20150924, end: 20161017
  34. IRINOTECAN [Concomitant]
     Active Substance: IRINOTECAN
     Dosage: 220 MG, EVERY 3 WEEKS
     Route: 042
     Dates: start: 20160208, end: 20160208
  35. FOSINORM [Concomitant]
     Dosage: 0.5 DF, 1X/DAY
     Route: 048
     Dates: start: 2001
  36. AMLODIPINE [Concomitant]
     Active Substance: AMLODIPINE BESYLATE
     Indication: HYPERTENSION
     Dosage: 7.5 MG, 1X/DAY
     Route: 048
     Dates: start: 20140701
  37. DEXAMETHASON [Concomitant]
     Active Substance: DEXAMETHASONE
     Indication: NAUSEA
     Dosage: DAY 1 BEFORE CHEMOTHERAPY
     Route: 042
     Dates: start: 20160413, end: 20161004
  38. OXALIPLATIN. [Suspect]
     Active Substance: OXALIPLATIN
     Indication: COLORECTAL CANCER METASTATIC
     Dosage: 167 MG, EVERY 3 WEEKS
     Route: 042
     Dates: start: 20160413, end: 20160504
  39. AMLODIPINE [Concomitant]
     Active Substance: AMLODIPINE BESYLATE
     Dosage: 7.5 MG, 1X/DAY
     Route: 048
     Dates: start: 201407

REACTIONS (12)
  - Circulatory collapse [Recovered/Resolved]
  - Weight decreased [Not Recovered/Not Resolved]
  - Diarrhoea [Recovered/Resolved]
  - Proteinuria [Not Recovered/Not Resolved]
  - Hypokalaemia [Recovered/Resolved]
  - Diarrhoea [Recovered/Resolved]
  - Diarrhoea [Recovering/Resolving]
  - Vomiting [Recovered/Resolved]
  - Decreased appetite [Recovered/Resolved]
  - Diarrhoea [Recovered/Resolved]
  - Dehydration [Recovered/Resolved]
  - Prothrombin time prolonged [Recovered/Resolved]

NARRATIVE: CASE EVENT DATE: 20150925
